FAERS Safety Report 7295110-8 (Version None)
Quarter: 2011Q1

REPORT INFORMATION
  Report Type: 
  Country: None (occurrence: None)
  Receive Date: 20110216
  Receipt Date: 20110209
  Transmission Date: 20110831
  Serious: Yes (Hospitalization)
  Sender: FDA-Public Use
  Company Number: DE-JNJFOC-20110202319

PATIENT
  Age: 76 Year
  Sex: Female
  Weight: 54 kg

DRUGS (13)
  1. SIFROL [Concomitant]
     Indication: PARKINSON'S DISEASE
     Route: 048
  2. FENTANYL [Suspect]
     Indication: PAIN
     Dosage: 50UG/HR
     Route: 062
  3. FENTANYL [Suspect]
     Route: 062
  4. NOVAMINSULFON [Concomitant]
     Indication: PAIN
     Route: 048
  5. RAMIPRIL [Concomitant]
     Indication: HYPERTENSION
     Route: 048
  6. LEVODOPA/BENSERAZIDE [Concomitant]
     Indication: PARKINSON'S DISEASE
     Route: 048
  7. LEVODOPA COMP [Concomitant]
     Indication: PARKINSON'S DISEASE
     Route: 048
  8. PANTOPRAZOL [Concomitant]
     Indication: GASTROOESOPHAGEAL REFLUX DISEASE
     Route: 048
  9. IBUPROFEN [Concomitant]
     Indication: PAIN
     Route: 048
  10. SEROQUEL [Concomitant]
     Indication: BIPOLAR DISORDER
     Route: 048
  11. TAVOR [Concomitant]
     Indication: BIPOLAR DISORDER
     Route: 048
  12. FENTANYL [Suspect]
     Route: 062
  13. STALEVO 100 [Concomitant]
     Indication: PARKINSON'S DISEASE
     Route: 048

REACTIONS (2)
  - VOMITING [None]
  - FAECALOMA [None]
